FAERS Safety Report 23589767 (Version 1)
Quarter: 2024Q1

REPORT INFORMATION
  Report Type: Spontaneous
  Country: US (occurrence: US)
  Receive Date: 20240304
  Receipt Date: 20240304
  Transmission Date: 20240410
  Serious: No
  Sender: FDA-Public Use
  Company Number: US-SA-SAC20240226000467

PATIENT
  Age: 37 Year
  Sex: Female

DRUGS (2)
  1. DUPIXENT [Suspect]
     Active Substance: DUPILUMAB
     Indication: Dermatitis atopic
     Dosage: 300 MG, QOW
     Route: 058
  2. DUPIXENT [Suspect]
     Active Substance: DUPILUMAB
     Dosage: 300 MG, Q3W
     Route: 058

REACTIONS (11)
  - Muscle spasms [Unknown]
  - Abdominal pain upper [Unknown]
  - Alopecia [Unknown]
  - Dry skin [Unknown]
  - Skin fissures [Unknown]
  - Vertigo [Unknown]
  - Pruritus [Unknown]
  - Conjunctivitis [Unknown]
  - Injection site pain [Unknown]
  - Therapeutic response decreased [Unknown]
  - Incorrect product administration duration [Unknown]
